FAERS Safety Report 10736474 (Version 1)
Quarter: 2015Q1

REPORT INFORMATION
  Report Type: Spontaneous
  Country: US (occurrence: None)
  Receive Date: 20150122
  Receipt Date: 20150122
  Transmission Date: 20150721
  Serious: Yes (Disabling)
  Sender: FDA-Public Use
  Company Number: None

PATIENT
  Age: 51 Year
  Weight: 52.16 kg

DRUGS (1)
  1. COPAXONE [Suspect]
     Active Substance: GLATIRAMER ACETATE
     Indication: RELAPSING-REMITTING MULTIPLE SCLEROSIS
     Dosage: ONE DOSE ONCE DAILY GIVEN INTO/UNDER THE SKIN
     Route: 058
     Dates: start: 20130520, end: 20130723

REACTIONS (9)
  - Dyspnoea [None]
  - Nervous system disorder [None]
  - Fatigue [None]
  - Alopecia [None]
  - Night sweats [None]
  - Chills [None]
  - Malaise [None]
  - Burning sensation [None]
  - Pain [None]

NARRATIVE: CASE EVENT DATE: 20140723
